FAERS Safety Report 9981355 (Version 2)
Quarter: 2014Q1

REPORT INFORMATION
  Report Type: Report from Study
  Country: US (occurrence: US)
  Receive Date: 20140307
  Receipt Date: 20140307
  Transmission Date: 20141002
  Serious: Yes (Life-Threatening, Hospitalization)
  Sender: FDA-Public Use
  Company Number: US-SA-POMP-1002209

PATIENT
  Age: 3 Year
  Sex: Female
  Weight: 15.9 kg

DRUGS (32)
  1. ALGLUCOSIDASE ALFA [Suspect]
     Indication: GLYCOGEN STORAGE DISEASE TYPE II
     Dosage: 18.75 MG/KG, UNK
     Route: 042
     Dates: start: 20120412, end: 20120531
  2. ALGLUCOSIDASE ALFA [Suspect]
     Indication: GLYCOGEN STORAGE DISEASE TYPE II
     Dosage: 18.75 MG/KG, UNK
     Route: 042
     Dates: start: 20120412, end: 20120531
  3. ALGLUCOSIDASE ALFA [Suspect]
     Indication: GLYCOGEN STORAGE DISEASE TYPE II
     Dosage: 10 MG/KG, UNK
     Route: 042
     Dates: start: 20120607, end: 20120621
  4. ALGLUCOSIDASE ALFA [Suspect]
     Indication: GLYCOGEN STORAGE DISEASE TYPE II
     Dosage: UNK
     Route: 042
     Dates: start: 20121018
  5. ALGLUCOSIDASE ALFA [Concomitant]
     Indication: GLYCOGEN STORAGE DISEASE TYPE II
     Route: 042
  6. ALGLUCOSIDASE ALFA [Concomitant]
     Indication: GLYCOGEN STORAGE DISEASE TYPE II
     Dosage: UNK
     Route: 042
     Dates: start: 20120627, end: 20121018
  7. SPIRONOLACTONE [Concomitant]
     Dosage: UNK
  8. ERGOCALCIFEROL [Concomitant]
  9. DIGOXIN [Concomitant]
     Dosage: 44 MCG, Q12HR
     Route: 042
  10. ENALAPRIL MALEATE [Concomitant]
     Dosage: 80 MCG, Q12HR
     Route: 042
  11. FUROSEMIDE [Concomitant]
     Dosage: 10 MG, QD
     Route: 042
  12. CETIRIZINE HYDROCHLORIDE [Concomitant]
  13. BUDESONIDE [Concomitant]
     Dosage: 0.5 MG, BID
  14. VITAMINS NOS [Concomitant]
  15. POTASSIUM CHLORIDE [Concomitant]
  16. OMEPRAZOLE [Concomitant]
  17. ONDANSETRON HYDROCHLORIDE [Concomitant]
     Dosage: 2 MG, Q12HR
     Route: 042
  18. BACITRACIN [Concomitant]
  19. HYDROXYZINE [Concomitant]
  20. HYDROCORTISONE ACETATE [Concomitant]
  21. PARACETAMOL [Concomitant]
     Indication: PREMEDICATION
  22. PANTOPRAZOLE [Concomitant]
     Dosage: 20 MG, Q12HR
     Route: 042
  23. METRONIDAZOLE [Concomitant]
     Dosage: 160 MG, Q6HR
     Route: 042
  24. LEVOSALBUTAMOL [Concomitant]
     Dosage: 0.63 MG, Q4HR
     Route: 055
  25. CEFTRIAXONE [Concomitant]
     Dosage: 800 MG, QD
     Route: 042
  26. OMEPRAZOLE [Concomitant]
     Dosage: 20 MG, Q12HR
  27. DIGOXIN [Concomitant]
     Dosage: 55 MCG, Q12HR
     Route: 065
  28. FEXOFENADINE [Concomitant]
  29. DIPHENHYDRAMINE [Concomitant]
     Indication: PREMEDICATION
     Route: 042
  30. BUDESONIDE [Concomitant]
     Dosage: 0.5 MG, UNK
  31. COLESTYRAMINE [Concomitant]
     Dosage: 1 G, Q8HR
  32. SIMETICONE [Concomitant]
     Dosage: 40 MG, QID

REACTIONS (6)
  - Dehydration [Recovered/Resolved]
  - Abdominal pain [Recovered/Resolved]
  - Diarrhoea [Recovered/Resolved]
  - Cholecystitis acute [Recovered/Resolved]
  - Cholelithiasis [Recovered/Resolved]
  - Tracheitis [Recovered/Resolved]
